FAERS Safety Report 10800950 (Version 2)
Quarter: 2015Q1

REPORT INFORMATION
  Report Type: Spontaneous
  Country: US (occurrence: US)
  Receive Date: 20150216
  Receipt Date: 20150216
  Transmission Date: 20150721
  Serious: No
  Sender: FDA-Public Use
  Company Number: US-ALLERGAN-1419152US

PATIENT
  Age: 85 Year
  Sex: Female

DRUGS (18)
  1. SYSTANE (HYPROMELLOSE 2910 (4000 MPA.S)) [Concomitant]
     Active Substance: HYPROMELLOSE 2910 (4000 MPA.S)
     Route: 047
  2. PREMARIN [Concomitant]
     Active Substance: ESTROGENS, CONJUGATED
     Dosage: UNK
  3. DIGOXIN. [Concomitant]
     Active Substance: DIGOXIN
     Indication: CARDIAC DISORDER
     Dosage: .125 ORAL
     Route: 048
  4. VICODIN [Concomitant]
     Active Substance: ACETAMINOPHEN\HYDROCODONE BITARTRATE
     Indication: PAIN
     Dosage: UNK
     Route: 048
     Dates: start: 1999
  5. XANAX [Concomitant]
     Active Substance: ALPRAZOLAM
     Dosage: 0.5 UNK, PRN
     Route: 048
  6. CIPROFLOXACIN. [Concomitant]
     Active Substance: CIPROFLOXACIN
     Indication: PNEUMONIA
     Dosage: UNK
     Route: 048
  7. TOPROL XL [Concomitant]
     Active Substance: METOPROLOL SUCCINATE
     Dosage: 25 MG, UNK
     Route: 048
  8. D3 [Concomitant]
     Active Substance: 25-HYDROXYCHOLECALCIFEROL, 5-TRANS-
     Indication: OSTEOPOROSIS
     Dosage: UNK
     Route: 048
  9. CARDIZEM [Concomitant]
     Active Substance: DILTIAZEM HYDROCHLORIDE
     Indication: CARDIAC DISORDER
     Dosage: 125 MG, QD
     Route: 048
  10. RESTASIS [Suspect]
     Active Substance: CYCLOSPORINE
     Indication: PRODUCT USED FOR UNKNOWN INDICATION
     Dosage: 2 GTT, BID
     Route: 047
  11. NEURONTIN [Concomitant]
     Active Substance: GABAPENTIN
     Indication: VIITH NERVE PARALYSIS
     Dosage: 125 ORAL
     Route: 048
  12. ASA [Concomitant]
     Active Substance: ASPIRIN
     Dosage: 325 UNK, QD
     Route: 048
  13. POTASSIUM [Concomitant]
     Active Substance: POTASSIUM
     Dosage: UNK
  14. AZOPT [Concomitant]
     Active Substance: BRINZOLAMIDE
     Dosage: 2 GTT, BID
     Route: 047
  15. ONDANSETRON [Concomitant]
     Active Substance: ONDANSETRON
     Indication: NAUSEA
     Route: 048
  16. MVI [Concomitant]
     Active Substance: VITAMINS
     Dosage: UNK
     Route: 048
  17. CALCIUM [Concomitant]
     Active Substance: CALCIUM
     Dosage: UNK
     Route: 048
  18. LUMIGAN [Concomitant]
     Active Substance: BIMATOPROST
     Dosage: 2 GTT, QHS
     Route: 047

REACTIONS (4)
  - Drug ineffective [Unknown]
  - Incorrect product storage [Unknown]
  - Visual acuity reduced [Unknown]
  - Eye pain [Recovering/Resolving]
